FAERS Safety Report 17895221 (Version 1)
Quarter: 2020Q2

REPORT INFORMATION
  Report Type: Spontaneous
  Country: US (occurrence: US)
  Receive Date: 20200614
  Receipt Date: 20200614
  Transmission Date: 20200714
  Serious: No
  Sender: FDA-Public Use
  Company Number: None

PATIENT
  Age: 63 Year
  Sex: Female
  Weight: 67.5 kg

DRUGS (4)
  1. PRAVASTATIN. [Concomitant]
     Active Substance: PRAVASTATIN
  2. TAZTIA XT [Suspect]
     Active Substance: DILTIAZEM HYDROCHLORIDE
     Indication: HYPERTENSION
     Dosage: ?          QUANTITY:1 CAPSULE(S);?
     Route: 048
     Dates: start: 20200613, end: 20200613
  3. BABY ASPIRIN [Concomitant]
     Active Substance: ASPIRIN
  4. DILTIAZEM ER [Concomitant]
     Active Substance: DILTIAZEM

REACTIONS (10)
  - Tachycardia [None]
  - Blood pressure increased [None]
  - Palpitations [None]
  - Product formulation issue [None]
  - Chest discomfort [None]
  - Chest pain [None]
  - Headache [None]
  - Dry mouth [None]
  - Product substitution issue [None]
  - Dizziness [None]

NARRATIVE: CASE EVENT DATE: 20200613
